FAERS Safety Report 9977344 (Version 1)
Quarter: 2014Q1

REPORT INFORMATION
  Report Type: Report from Study
  Country: US (occurrence: US)
  Receive Date: 20140306
  Receipt Date: 20140306
  Transmission Date: 20141002
  Serious: No
  Sender: FDA-Public Use
  Company Number: US-ABBVIE-13P-163-1165077-00

PATIENT
  Sex: Male
  Weight: 65.83 kg

DRUGS (10)
  1. HUMIRA [Suspect]
     Indication: ANKYLOSING SPONDYLITIS
     Dates: start: 201301
  2. CARVEDILOL [Concomitant]
     Indication: HYPERTENSION
  3. LISINOPRIL [Concomitant]
     Indication: HYPERTENSION
  4. VITAMIN D [Concomitant]
     Indication: VITAMIN SUPPLEMENTATION
  5. MELOXICAM [Concomitant]
     Indication: PAIN
  6. HYDROXYZINE HCL [Concomitant]
     Indication: ECZEMA
  7. TRIAMCINOLONE [Concomitant]
     Indication: ECZEMA
  8. CAMPHOR [Concomitant]
     Indication: ECZEMA
  9. TRAZODONE [Concomitant]
     Indication: DEPRESSION
  10. TRAMADOL [Concomitant]
     Indication: PAIN

REACTIONS (1)
  - Arthralgia [Not Recovered/Not Resolved]
